FAERS Safety Report 7834428-4 (Version None)
Quarter: 2011Q4

REPORT INFORMATION
  Report Type: 
  Country: None (occurrence: None)
  Receive Date: 20111024
  Receipt Date: 20111020
  Transmission Date: 20120403
  Serious: Yes (Death, Other)
  Sender: FDA-Public Use
  Company Number: GB-ELI_LILLY_AND_COMPANY-GB201107005923

PATIENT
  Age: 52 Year
  Sex: Male
  Weight: 93.5 kg

DRUGS (4)
  1. BYETTA [Suspect]
     Indication: DIABETES MELLITUS
     Dosage: 10 UG, BID
     Route: 058
     Dates: start: 20080425, end: 20100801
  2. INSULIN DETEMIR [Concomitant]
     Dosage: UNK, UNKNOWN
  3. METFORMIN HCL [Concomitant]
     Dosage: UNK, UNKNOWN
  4. SIMVASTATIN [Concomitant]
     Dosage: UNK, UNKNOWN

REACTIONS (1)
  - PANCREATIC CARCINOMA METASTATIC [None]
